FAERS Safety Report 6415005-9 (Version None)
Quarter: 2009Q4

REPORT INFORMATION
  Report Type: 
  Country: None (occurrence: None)
  Receive Date: 20091026
  Receipt Date: 20090922
  Transmission Date: 20100525
  Serious: No
  Sender: FDA-Public Use
  Company Number: US-ABBOTT-09P-163-0599440-00

PATIENT
  Sex: Female
  Weight: 63.56 kg

DRUGS (3)
  1. LUPRON DEPOT [Suspect]
     Indication: ENDOMETRIOSIS
     Route: 050
     Dates: start: 20081101, end: 20090101
  2. LUPRON DEPOT [Suspect]
     Route: 050
  3. NORETHIDONE [Concomitant]
     Indication: ENDOMETRIOSIS
     Route: 048

REACTIONS (2)
  - ABDOMINAL PAIN [None]
  - VAGINAL HAEMORRHAGE [None]
